FAERS Safety Report 18332832 (Version 34)
Quarter: 2024Q4

REPORT INFORMATION
  Report Type: Spontaneous
  Country: CA (occurrence: CA)
  Receive Date: 20200930
  Receipt Date: 20241122
  Transmission Date: 20250114
  Serious: Yes (Other)
  Sender: CELLTRION
  Company Number: CA-CELLTRION INC.-2019CA025090

PATIENT

DRUGS (49)
  1. INFLECTRA [Suspect]
     Active Substance: INFLIXIMAB-DYYB
     Indication: Crohn^s disease
     Dosage: 330 MG, 0, 2, 6 THEN EVERY 8 WEEKS
     Route: 042
     Dates: start: 20190828
  2. INFLECTRA [Suspect]
     Active Substance: INFLIXIMAB-DYYB
     Dosage: 330 MG, 0, 2, 6 THEN EVERY 8 WEEKS
     Route: 042
     Dates: start: 20190910
  3. INFLECTRA [Suspect]
     Active Substance: INFLIXIMAB-DYYB
     Dosage: 330 MG, 0, 2, 6 THEN EVERY 8 WEEKS
     Route: 042
     Dates: start: 20191009, end: 20191009
  4. INFLECTRA [Suspect]
     Active Substance: INFLIXIMAB-DYYB
     Dosage: 330 MG, 0, 2, 6 THEN EVERY 8 WEEKS
     Route: 042
     Dates: start: 20191009, end: 20191009
  5. INFLECTRA [Suspect]
     Active Substance: INFLIXIMAB-DYYB
     Dosage: 330 MG, 0, 2, 6 THEN EVERY 8 WEEKS
     Route: 042
     Dates: start: 20191009, end: 20191009
  6. INFLECTRA [Suspect]
     Active Substance: INFLIXIMAB-DYYB
     Dosage: 330 MG, 0, 2, 6 THEN EVERY 8 WEEKS
     Route: 042
     Dates: start: 20191209
  7. INFLECTRA [Suspect]
     Active Substance: INFLIXIMAB-DYYB
     Dosage: 330 MG EVERY 8 WEEKS
     Route: 042
     Dates: start: 20200131
  8. INFLECTRA [Suspect]
     Active Substance: INFLIXIMAB-DYYB
     Dosage: 330 MG EVERY 8 WEEKS
     Route: 042
     Dates: start: 20200326
  9. INFLECTRA [Suspect]
     Active Substance: INFLIXIMAB-DYYB
     Dosage: 330 MG EVERY 8 WEEKS
     Route: 042
     Dates: start: 20200521
  10. INFLECTRA [Suspect]
     Active Substance: INFLIXIMAB-DYYB
     Dosage: 330 MG EVERY 8 WEEKS
     Route: 042
     Dates: start: 20200714
  11. INFLECTRA [Suspect]
     Active Substance: INFLIXIMAB-DYYB
     Dosage: 330 MG EVERY 8 WEEKS
     Route: 042
     Dates: start: 20200908
  12. INFLECTRA [Suspect]
     Active Substance: INFLIXIMAB-DYYB
     Dosage: 330 MG EVERY 8 WEEKS
     Route: 042
     Dates: start: 20201109
  13. INFLECTRA [Suspect]
     Active Substance: INFLIXIMAB-DYYB
     Dosage: 330 MG EVERY 8 WEEKS
     Route: 042
     Dates: start: 20201230
  14. INFLECTRA [Suspect]
     Active Substance: INFLIXIMAB-DYYB
     Dosage: 330 MG EVERY 8 WEEKS
     Route: 042
     Dates: start: 20210225
  15. INFLECTRA [Suspect]
     Active Substance: INFLIXIMAB-DYYB
     Dosage: 330 MG EVERY 8 WEEKS
     Route: 042
     Dates: start: 20210422, end: 20210422
  16. INFLECTRA [Suspect]
     Active Substance: INFLIXIMAB-DYYB
     Dosage: 330 MG EVERY 8 WEEKS
     Route: 042
     Dates: start: 20210617
  17. INFLECTRA [Suspect]
     Active Substance: INFLIXIMAB-DYYB
     Dosage: 330 MG (5.07MG/KG) EVERY 8 WEEKS
     Route: 042
     Dates: start: 20210812
  18. INFLECTRA [Suspect]
     Active Substance: INFLIXIMAB-DYYB
     Dosage: 330 MG (5MG/KG) EVERY 6 WEEKS
     Route: 042
     Dates: start: 20210927, end: 20210927
  19. INFLECTRA [Suspect]
     Active Substance: INFLIXIMAB-DYYB
     Dosage: 330 MG (5MG/KG) EVERY 6 WEEKS
     Route: 042
     Dates: start: 20211108
  20. INFLECTRA [Suspect]
     Active Substance: INFLIXIMAB-DYYB
     Dosage: 330 MG (5MG/KG) EVERY 6 WEEKS
     Route: 042
     Dates: start: 20211220
  21. INFLECTRA [Suspect]
     Active Substance: INFLIXIMAB-DYYB
     Dosage: 330 MG,(5MG/KG) EVERY 6 WEEKS
     Route: 042
     Dates: start: 20220131
  22. INFLECTRA [Suspect]
     Active Substance: INFLIXIMAB-DYYB
     Dosage: 330 MG,(5MG/KG) EVERY 6 WEEKS
     Route: 042
     Dates: start: 20220324
  23. INFLECTRA [Suspect]
     Active Substance: INFLIXIMAB-DYYB
     Dosage: 330 MG,(5MG/KG) EVERY 6 WEEKS
     Route: 042
     Dates: start: 20220504
  24. INFLECTRA [Suspect]
     Active Substance: INFLIXIMAB-DYYB
     Dosage: 5 MG/KG EVERY 6 WEEKS
     Route: 042
     Dates: start: 20220615
  25. INFLECTRA [Suspect]
     Active Substance: INFLIXIMAB-DYYB
     Dosage: 5 MG/KG EVERY 6 WEEKS
     Route: 042
     Dates: start: 20220728
  26. INFLECTRA [Suspect]
     Active Substance: INFLIXIMAB-DYYB
     Dosage: 5 MG/KG EVERY 6 WEEKS
     Route: 042
     Dates: start: 20220901
  27. INFLECTRA [Suspect]
     Active Substance: INFLIXIMAB-DYYB
     Dosage: 5 MG/KG EVERY 6 WEEKS
     Route: 042
     Dates: start: 20221012
  28. INFLECTRA [Suspect]
     Active Substance: INFLIXIMAB-DYYB
     Dosage: 352.5 MG (5 MG/KG) EVERY 6 WEEKS
     Route: 042
     Dates: start: 20230105
  29. INFLECTRA [Suspect]
     Active Substance: INFLIXIMAB-DYYB
     Dosage: 352.5 MG (5 MG/KG) EVERY 6 WEEKS
     Route: 042
     Dates: start: 20230216
  30. INFLECTRA [Suspect]
     Active Substance: INFLIXIMAB-DYYB
     Dosage: 345 MG EVERY 6 WEEKS
     Route: 042
     Dates: start: 20230330
  31. INFLECTRA [Suspect]
     Active Substance: INFLIXIMAB-DYYB
     Dosage: 5 MG/KG, EVERY 6 WEEKS
     Route: 042
     Dates: start: 20230511
  32. INFLECTRA [Suspect]
     Active Substance: INFLIXIMAB-DYYB
     Dosage: 5 MG/KG, EVERY 6 WEEKS
     Route: 042
     Dates: start: 20230620
  33. INFLECTRA [Suspect]
     Active Substance: INFLIXIMAB-DYYB
     Dosage: 345.5 MG, EVERY 6 WEEKS
     Route: 042
     Dates: start: 20230803
  34. INFLECTRA [Suspect]
     Active Substance: INFLIXIMAB-DYYB
     Dosage: 345.5 MG, EVERY 6 WEEKS
     Route: 042
     Dates: start: 20230803
  35. INFLECTRA [Suspect]
     Active Substance: INFLIXIMAB-DYYB
     Dosage: 341.5 MG, AFTER 6 WEEKS AND 5 DAYS (PRESCRIBED EVERY 6 WEEKS)
     Route: 042
     Dates: start: 20230919
  36. INFLECTRA [Suspect]
     Active Substance: INFLIXIMAB-DYYB
     Dosage: 5 MG/KG, EVERY 6 WEEKS
     Route: 042
     Dates: start: 20231208
  37. INFLECTRA [Suspect]
     Active Substance: INFLIXIMAB-DYYB
     Dosage: 363MG (5 MG/KG), EVERY 6 WEEKS
     Route: 042
     Dates: start: 20240122
  38. INFLECTRA [Suspect]
     Active Substance: INFLIXIMAB-DYYB
     Dosage: 353.5 MG (5 MG/KG) AFTER 7 WEEKS, PRESCRIBED EVERY 6 WEEKS
     Route: 042
     Dates: start: 20240311
  39. INFLECTRA [Suspect]
     Active Substance: INFLIXIMAB-DYYB
     Dosage: 339 MG (5 MG/KG), AFTER 5 WEEKS AND 2 DAYS (PRESCRIBED EVERY 6 WEEKS)
     Route: 042
     Dates: start: 20240417
  40. INFLECTRA [Suspect]
     Active Substance: INFLIXIMAB-DYYB
     Dosage: 5 MG/KG, EVERY 6 WEEKS (DOSAGE ADMINISTERED: 334.5 MG, 7 WEEKS)
     Route: 042
     Dates: start: 20240604
  41. INFLECTRA [Suspect]
     Active Substance: INFLIXIMAB-DYYB
     Dosage: 5 MG/KG, EVERY 6 WEEKS (DOSAGE ADMINISTERED: 334.5 MG, 7 WEEKS)
     Route: 042
     Dates: start: 20240725
  42. INFLECTRA [Suspect]
     Active Substance: INFLIXIMAB-DYYB
     Dosage: 348 MG ,10 WEEKS AFTER LAST TREATMENT (5 MG/KG, EVERY 6 WEEK)
     Route: 042
     Dates: start: 20241003
  43. INFLECTRA [Suspect]
     Active Substance: INFLIXIMAB-DYYB
     Dosage: 352 MG AFTER 5 WEEKS AND 6 DAYS (5MG/KG EVERY 6 WEEKS)
     Route: 042
     Dates: start: 20241113
  44. ACETAMINOPHEN [Concomitant]
     Active Substance: ACETAMINOPHEN
     Indication: Premedication
     Dosage: 650 MG
     Route: 048
     Dates: start: 20200326, end: 20200326
  45. DIPHENHYDRAMINE [Concomitant]
     Active Substance: DIPHENHYDRAMINE
     Indication: Premedication
     Dosage: 50 MG
     Route: 042
     Dates: start: 20200326, end: 20200326
  46. ENTOCORT [Concomitant]
     Active Substance: BUDESONIDE
     Dosage: 9 MG, 1X/DAY
     Route: 048
     Dates: start: 201902
  47. ENTOCORT [Concomitant]
     Active Substance: BUDESONIDE
     Dosage: TAPERING
     Dates: start: 202106
  48. HYDROCORTISONE [Concomitant]
     Active Substance: HYDROCORTISONE
     Indication: Premedication
     Dosage: 100 MG
     Route: 042
     Dates: start: 20200326, end: 20200326
  49. CHOLECALCIFEROL [Concomitant]
     Active Substance: CHOLECALCIFEROL
     Dosage: 1 DF, 1X/DAY, DOSAGE INFORMATION NOT AVAILABLE.
     Route: 048

REACTIONS (42)
  - Lupus-like syndrome [Unknown]
  - Urinary tract infection bacterial [Recovered/Resolved]
  - Neck mass [Not Recovered/Not Resolved]
  - Therapeutic response shortened [Unknown]
  - Drug level above therapeutic [Unknown]
  - Condition aggravated [Not Recovered/Not Resolved]
  - Arthralgia [Recovered/Resolved]
  - Urticaria [Unknown]
  - Rash [Not Recovered/Not Resolved]
  - Rash pruritic [Not Recovered/Not Resolved]
  - Rash macular [Unknown]
  - Dermatitis allergic [Unknown]
  - Constipation [Unknown]
  - Psoriasis [Recovered/Resolved]
  - Emotional disorder [Unknown]
  - Frustration tolerance decreased [Unknown]
  - Mouth ulceration [Recovered/Resolved]
  - Fatigue [Recovering/Resolving]
  - Gingival swelling [Recovered/Resolved]
  - Noninfective gingivitis [Recovered/Resolved]
  - Infusion site pain [Unknown]
  - Exposure to SARS-CoV-2 [Unknown]
  - Dysuria [Unknown]
  - Aphthous ulcer [Recovered/Resolved]
  - Pelvic pain [Unknown]
  - Pain [Unknown]
  - Illness [Unknown]
  - Malaise [Not Recovered/Not Resolved]
  - Nasopharyngitis [Recovered/Resolved]
  - Nasal congestion [Recovered/Resolved]
  - Pharyngeal mass [Recovering/Resolving]
  - Blood pressure diastolic increased [Unknown]
  - Nasal congestion [Unknown]
  - Oropharyngeal pain [Unknown]
  - Throat tightness [Unknown]
  - Infusion site pain [Recovered/Resolved]
  - Nasopharyngitis [Not Recovered/Not Resolved]
  - Infusion site discharge [Recovered/Resolved]
  - Off label use [Unknown]
  - Off label use [Unknown]
  - Intentional product use issue [Unknown]
  - Inappropriate schedule of product administration [Unknown]

NARRATIVE: CASE EVENT DATE: 20190101
